FAERS Safety Report 4440825-X (Version None)
Quarter: 2004Q3

REPORT INFORMATION
  Report Type: 
  Country: None (occurrence: None)
  Receive Date: 20040903
  Receipt Date: 20040902
  Transmission Date: 20050211
  Serious: Yes (Hospitalization)
  Sender: FDA-Public Use
  Company Number: US-GLAXOSMITHKLINE-A0524513A

PATIENT
  Age: 65 Year
  Sex: Female

DRUGS (4)
  1. AVANDIA [Suspect]
     Dosage: 4MG TWICE PER DAY
     Route: 048
     Dates: start: 20030601, end: 20040101
  2. ZOCOR [Concomitant]
  3. VASOTEC [Concomitant]
  4. LIPITOR [Concomitant]

REACTIONS (9)
  - ASCITES [None]
  - FLUID RETENTION [None]
  - GRAVITATIONAL OEDEMA [None]
  - HYPERTENSION [None]
  - LOCALISED INFECTION [None]
  - NAUSEA [None]
  - RETINAL HAEMORRHAGE [None]
  - VOMITING [None]
  - WEIGHT INCREASED [None]
